FAERS Safety Report 19570934 (Version 2)
Quarter: 2021Q3

REPORT INFORMATION
  Report Type: Report from Study
  Country: ES (occurrence: ES)
  Receive Date: 20210715
  Receipt Date: 20210819
  Transmission Date: 20211014
  Serious: Yes (Hospitalization)
  Sender: FDA-Public Use
  Company Number: ES-TEVA-2021-ES-1931317

PATIENT
  Age: 67 Year
  Sex: Female

DRUGS (3)
  1. INTERFERON?BETA?1B [Suspect]
     Active Substance: INTERFERON BETA-1B
     Indication: RELAPSING MULTIPLE SCLEROSIS
     Dosage: BETWEEN 2004 AND 2014
     Route: 065
  2. DIMETHYL?FUMARATE [Suspect]
     Active Substance: DIMETHYL FUMARATE
     Indication: RELAPSING MULTIPLE SCLEROSIS
     Route: 065
     Dates: start: 201408
  3. GLATIRAMER?ACETATE [Suspect]
     Active Substance: GLATIRAMER ACETATE
     Indication: RELAPSING MULTIPLE SCLEROSIS
     Dosage: BETWEEN 2004 AND 2014
     Route: 065

REACTIONS (1)
  - Bladder transitional cell carcinoma [Recovered/Resolved]

NARRATIVE: CASE EVENT DATE: 201805
